FAERS Safety Report 6148839-9 (Version None)
Quarter: 2009Q2

REPORT INFORMATION
  Report Type: 
  Country: None (occurrence: None)
  Receive Date: 20090408
  Receipt Date: 20090331
  Transmission Date: 20091009
  Serious: Yes (Hospitalization, Disabling, Other)
  Sender: FDA-Public Use
  Company Number: US-MERCK-0810USA03092

PATIENT
  Age: 86 Year
  Sex: Female

DRUGS (5)
  1. FOSAMAX [Suspect]
     Indication: OSTEOPOROSIS
     Route: 048
     Dates: start: 20000601, end: 20060801
  2. FOSAMAX [Suspect]
     Route: 048
     Dates: start: 20000601
  3. FOSAMAX [Suspect]
     Route: 048
     Dates: start: 20030901, end: 20060801
  4. FOSAMAX [Suspect]
     Route: 048
     Dates: start: 20030901, end: 20060801
  5. [THERAPY UNSPECIFIED] [Concomitant]
     Indication: BLOOD PRESSURE
     Route: 065
     Dates: start: 19880101

REACTIONS (12)
  - BRONCHITIS [None]
  - CARDIOMEGALY [None]
  - DEAFNESS NEUROSENSORY [None]
  - DEPRESSION [None]
  - DYSPHONIA [None]
  - FALL [None]
  - HERPES ZOSTER [None]
  - HYSTERECTOMY [None]
  - ORAL TORUS [None]
  - OSTEONECROSIS [None]
  - OVERDOSE [None]
  - STOMATITIS [None]
